FAERS Safety Report 8066395-5 (Version None)
Quarter: 2012Q1

REPORT INFORMATION
  Report Type: 
  Country: None (occurrence: None)
  Receive Date: 20120124
  Receipt Date: 20120124
  Transmission Date: 20120608
  Serious: Yes (Other)
  Sender: FDA-Public Use
  Company Number: None

PATIENT
  Age: 42 Year
  Sex: Female
  Weight: 75.749 kg

DRUGS (1)
  1. CHORIONIC GONADOTROPIN [Suspect]
     Indication: WEIGHT CONTROL
     Dosage: .38 ML
     Route: 048
     Dates: start: 20120119, end: 20120123

REACTIONS (6)
  - ANGER [None]
  - CONDITION AGGRAVATED [None]
  - HEADACHE [None]
  - HOSTILITY [None]
  - POST-TRAUMATIC STRESS DISORDER [None]
  - DEPRESSION [None]
